FAERS Safety Report 9033083 (Version 1)
Quarter: 2013Q1

REPORT INFORMATION
  Report Type: Spontaneous
  Country: US (occurrence: US)
  Receive Date: 20130128
  Receipt Date: 20130128
  Transmission Date: 20140127
  Serious: No
  Sender: FDA-Public Use
  Company Number: US-PFIZER INC-2013028732

PATIENT
  Age: 49 Year
  Sex: Male
  Weight: 97.51 kg

DRUGS (5)
  1. CHANTIX [Suspect]
     Indication: SMOKING CESSATION THERAPY
     Dosage: 0.5 MG, 1X/DAY
     Dates: start: 20121030
  2. CHANTIX [Suspect]
     Dosage: 1 MG, 2X/DAY
  3. NEXIUM [Concomitant]
     Dosage: 40 MG, 1X/DAY
  4. BENICAR [Concomitant]
     Dosage: 40 MG, 1X/DAY
  5. VYTORIN [Concomitant]
     Dosage: 40/10 MG, 1X/DAY

REACTIONS (2)
  - Nausea [Not Recovered/Not Resolved]
  - Abdominal discomfort [Not Recovered/Not Resolved]
